FAERS Safety Report 8363216-8 (Version None)
Quarter: 2012Q2

REPORT INFORMATION
  Report Type: 
  Country: None (occurrence: None)
  Receive Date: 20120516
  Receipt Date: 20120510
  Transmission Date: 20120825
  Serious: Yes (Other)
  Sender: FDA-Public Use
  Company Number: ES-PFIZER INC-2012115133

PATIENT
  Age: 77 Year
  Sex: Male

DRUGS (5)
  1. IMIPENEM [Suspect]
     Indication: PNEUMONIA
     Dosage: 1500 MG, 1X/DAY
     Route: 042
     Dates: start: 20120416, end: 20120421
  2. AMIKACIN [Suspect]
     Indication: PNEUMONIA
     Dosage: 1 G, 1X/DAY
     Route: 042
     Dates: start: 20120411, end: 20120418
  3. ACETAMINOPHEN [Suspect]
     Indication: PYREXIA
     Dosage: 3 G, 1X/DAY
     Route: 042
     Dates: start: 20120411, end: 20120418
  4. ZYVOX [Suspect]
     Indication: PNEUMONIA
     Dosage: 1200 MG, 1X/DAY
     Route: 042
     Dates: start: 20120417, end: 20120419
  5. VFEND [Suspect]
     Indication: ASPERGILLOSIS
     Dosage: 400 MG, 1X/DAY
     Route: 042
     Dates: start: 20120418, end: 20120421

REACTIONS (1)
  - HEPATITIS [None]
